FAERS Safety Report 18968459 (Version 1)
Quarter: 2021Q1

REPORT INFORMATION
  Report Type: Spontaneous
  Country: TW (occurrence: TW)
  Receive Date: 20210304
  Receipt Date: 20210304
  Transmission Date: 20210420
  Serious: Yes (Hospitalization)
  Sender: FDA-Public Use
  Company Number: NVSC2021TW045986

PATIENT
  Sex: Female
  Weight: 95.8 kg

DRUGS (1)
  1. TEGRETOL XR [Suspect]
     Active Substance: CARBAMAZEPINE
     Indication: BIPOLAR I DISORDER
     Dosage: 200 MG, HS
     Route: 048
     Dates: start: 20170405, end: 20170427

REACTIONS (8)
  - Nasopharyngitis [Unknown]
  - Leukopenia [Recovering/Resolving]
  - Neck pain [Unknown]
  - Back pain [Unknown]
  - Productive cough [Recovering/Resolving]
  - Pyrexia [Recovering/Resolving]
  - Dizziness [Unknown]
  - Cough [Unknown]

NARRATIVE: CASE EVENT DATE: 20170425
